FAERS Safety Report 25088540 (Version 1)
Quarter: 2025Q1

REPORT INFORMATION
  Report Type: Spontaneous
  Country: US (occurrence: None)
  Receive Date: 20250317
  Receipt Date: 20250317
  Transmission Date: 20250408
  Serious: Yes (unspecified)
  Sender: FDA-CTU
  Company Number: None

PATIENT
  Age: 67 Year
  Sex: Male

DRUGS (2)
  1. LENALIDOMIDE [Suspect]
     Active Substance: LENALIDOMIDE
     Indication: Plasma cell myeloma
     Dosage: 10MG QD
  2. ELIQUIS [Suspect]
     Active Substance: APIXABAN

REACTIONS (5)
  - Gastroenteritis viral [None]
  - Therapy interrupted [None]
  - Pulmonary embolism [None]
  - Fatigue [None]
  - Joint swelling [None]
